FAERS Safety Report 11572208 (Version 1)
Quarter: 2015Q3

REPORT INFORMATION
  Report Type: Spontaneous
  Country: TR (occurrence: TR)
  Receive Date: 20150929
  Receipt Date: 20150929
  Transmission Date: 20151125
  Serious: Yes (Other)
  Sender: FDA-Public Use
  Company Number: PHHY2015TR115574

PATIENT
  Age: 5 Year
  Sex: Male

DRUGS (8)
  1. METHOTREXATE [Suspect]
     Active Substance: METHOTREXATE
     Indication: PROPHYLAXIS AGAINST GRAFT VERSUS HOST DISEASE
  2. CICLOSPORIN [Suspect]
     Active Substance: CYCLOSPORINE
     Indication: PROPHYLAXIS AGAINST GRAFT VERSUS HOST DISEASE
  3. URSODEOXYCHOLIC ACID [Concomitant]
     Active Substance: URSODIOL
     Indication: PROPHYLAXIS
     Route: 065
  4. PIPERACILLIN/TAZOBACTAM [Concomitant]
     Active Substance: PIPERACILLIN SODIUM\TAZOBACTAM SODIUM
     Indication: FEBRILE NEUTROPENIA
     Route: 065
  5. CICLOSPORIN [Suspect]
     Active Substance: CYCLOSPORINE
     Indication: STEM CELL TRANSPLANT
     Route: 065
  6. AMIKACIN [Concomitant]
     Active Substance: AMIKACIN
     Indication: FEBRILE NEUTROPENIA
     Route: 065
  7. METHOTREXATE [Suspect]
     Active Substance: METHOTREXATE
     Indication: STEM CELL TRANSPLANT
     Route: 065
  8. HEPARIN [Concomitant]
     Active Substance: HEPARIN SODIUM
     Indication: PROPHYLAXIS
     Route: 065

REACTIONS (7)
  - Generalised tonic-clonic seizure [Recovered/Resolved]
  - Diarrhoea [Recovered/Resolved]
  - Haematochezia [Unknown]
  - Hallucination [Recovered/Resolved]
  - Posterior reversible encephalopathy syndrome [Unknown]
  - Graft versus host disease in gastrointestinal tract [Unknown]
  - Diarrhoea haemorrhagic [Recovered/Resolved]
